FAERS Safety Report 7332361-8 (Version None)
Quarter: 2011Q1

REPORT INFORMATION
  Report Type: 
  Country: None (occurrence: None)
  Receive Date: 20110304
  Receipt Date: 20110224
  Transmission Date: 20110831
  Serious: Yes (Hospitalization)
  Sender: FDA-Public Use
  Company Number: A0916426A

PATIENT
  Age: 64 Year
  Sex: Female

DRUGS (2)
  1. AVANDAMET [Suspect]
     Dates: start: 20100907
  2. COREG CR [Suspect]
     Dates: start: 20100907

REACTIONS (2)
  - AMPUTATION [None]
  - DISORIENTATION [None]
